FAERS Safety Report 25472668 (Version 1)
Quarter: 2025Q2

REPORT INFORMATION
  Report Type: Spontaneous
  Country: DE (occurrence: DE)
  Receive Date: 20250624
  Receipt Date: 20250624
  Transmission Date: 20250716
  Serious: Yes (Hospitalization, Other)
  Sender: BRISTOL-MYERS SQUIBB COMPANY
  Company Number: DE-BRISTOL-MYERS SQUIBB COMPANY-2025-086601

PATIENT
  Age: 50 Year

DRUGS (7)
  1. IPILIMUMAB [Suspect]
     Active Substance: IPILIMUMAB
     Indication: Malignant melanoma
     Dosage: 3MG/KG BODY WEIGHT
     Dates: start: 201812
  2. IPILIMUMAB [Suspect]
     Active Substance: IPILIMUMAB
     Dates: start: 201812
  3. IPILIMUMAB [Suspect]
     Active Substance: IPILIMUMAB
     Dates: start: 202001
  4. NIVOLUMAB [Suspect]
     Active Substance: NIVOLUMAB
     Indication: Malignant melanoma
     Dosage: 1 MG/KG BODY WEIGHT Q3W
     Dates: start: 201812
  5. NIVOLUMAB [Suspect]
     Active Substance: NIVOLUMAB
     Dates: start: 202002
  6. NIVOLUMAB [Suspect]
     Active Substance: NIVOLUMAB
     Dates: start: 202110
  7. NIVOLUMAB [Suspect]
     Active Substance: NIVOLUMAB
     Dates: start: 202001

REACTIONS (8)
  - Proctitis [Recovered/Resolved]
  - Colitis [Recovered/Resolved]
  - Hepatitis [Recovered/Resolved]
  - Thyroiditis [Recovered/Resolved]
  - Post procedural complication [Unknown]
  - Vitiligo [Unknown]
  - Malignant neoplasm progression [Unknown]
  - Metastases to adrenals [Unknown]

NARRATIVE: CASE EVENT DATE: 20190131
